FAERS Safety Report 7532499 (Version 2)
Quarter: 2013Q3

REPORT INFORMATION
  Report Type: Spontaneous
  Country: US (occurrence: US)
  Receive Date: 20100806
  Receipt Date: 20130809
  Transmission Date: 20140515
  Serious: Yes (Hospitalization, Other)
  Sender: FDA-Public Use
  Company Number: US-PFIZER INC-2009171765

PATIENT
  Age: 29 Year
  Sex: Female

DRUGS (5)
  1. DILANTIN [Suspect]
     Indication: CONVULSION
     Dosage: 1 G, 1X/DAY
     Route: 042
     Dates: start: 20070421, end: 20070421
  2. DILANTIN [Suspect]
     Dosage: 100 MG, 3X/DAY
     Route: 042
     Dates: start: 20070421, end: 20070421
  3. DILANTIN-125 [Suspect]
     Indication: CONVULSION
     Dosage: 100 MG, 2X/DAY
     Route: 048
     Dates: start: 20070422, end: 20070507
  4. ADVAIR [Concomitant]
     Dosage: 1 DF (ONE PUFF ), 2X/DAY
  5. ALBUTEROL [Concomitant]
     Dosage: 2 DF (TWO PUFFS ), 2X/DAY

REACTIONS (2)
  - Stevens-Johnson syndrome [Recovering/Resolving]
  - Toxic epidermal necrolysis [Recovering/Resolving]
